FAERS Safety Report 9417761 (Version 7)
Quarter: 2014Q2

REPORT INFORMATION
  Report Type: Spontaneous
  Country: US (occurrence: US)
  Receive Date: 20130724
  Receipt Date: 20140528
  Transmission Date: 20141212
  Serious: Yes (Hospitalization)
  Sender: FDA-Public Use
  Company Number: US-GLAXOSMITHKLINE-A1034235A

PATIENT
  Age: 44 Year
  Sex: Male

DRUGS (4)
  1. FLOLAN [Suspect]
     Indication: PULMONARY ARTERIAL HYPERTENSION
     Dosage: 10NGKM CONTINUOUS
     Route: 042
     Dates: start: 20121029
  2. LETAIRIS [Concomitant]
  3. REVATIO [Concomitant]
  4. WARFARIN [Concomitant]

REACTIONS (7)
  - Thrombosis in device [Recovered/Resolved]
  - Device alarm issue [Recovered/Resolved]
  - Medical device complication [Recovered/Resolved]
  - Investigation [Not Recovered/Not Resolved]
  - Upper respiratory tract infection [Unknown]
  - Anaemia [Recovered/Resolved]
  - Fatigue [Recovered/Resolved]
